FAERS Safety Report 6017171-6 (Version None)
Quarter: 2008Q4

REPORT INFORMATION
  Report Type: 
  Country: None (occurrence: None)
  Receive Date: 20081223
  Receipt Date: 20081218
  Transmission Date: 20090506
  Serious: Yes (Hospitalization)
  Sender: FDA-Public Use
  Company Number: CH-BRISTOL-MYERS SQUIBB COMPANY-14450340

PATIENT
  Age: 56 Year
  Sex: Female

DRUGS (8)
  1. SELIPRAN TABS 20 MG [Suspect]
     Route: 048
     Dates: start: 20081124
  2. CEFEPIME [Suspect]
     Route: 042
     Dates: start: 20081106, end: 20081124
  3. TARGOCID [Concomitant]
     Dosage: VIALS STRENGTH=400MG
     Route: 042
     Dates: start: 20081106
  4. VFEND [Concomitant]
     Dosage: POWDERS, STRENGTH=200MG
     Route: 042
     Dates: start: 20081109
  5. METOPROLOL TARTRATE [Concomitant]
     Dosage: TABLET
     Route: 048
     Dates: start: 20081011
  6. CLEXANE [Concomitant]
     Dosage: VIALS
     Route: 058
     Dates: start: 20081001
  7. VALTREX [Concomitant]
     Dosage: STRENGTH=500MG
     Route: 048
  8. ZURCAL [Concomitant]
     Dosage: TAB. STRENGTH=20MG
     Route: 048

REACTIONS (3)
  - PRURITUS [None]
  - PURPURA [None]
  - RASH MACULAR [None]
